FAERS Safety Report 9357837 (Version 1)
Quarter: 2013Q2

REPORT INFORMATION
  Report Type: Spontaneous
  Country: JP (occurrence: JP)
  Receive Date: 20130620
  Receipt Date: 20130620
  Transmission Date: 20140414
  Serious: Yes (Other)
  Sender: FDA-Public Use
  Company Number: JP-UCBSA-089008

PATIENT
  Age: 75 Year
  Sex: Male

DRUGS (5)
  1. CERTOLIZUMAB PEGOL [Suspect]
     Indication: RHEUMATOID ARTHRITIS
     Route: 058
     Dates: start: 20130516, end: 20130530
  2. PREDNISOLONE [Concomitant]
     Dosage: DAILY DOSE: 6 MG
     Dates: start: 20130307
  3. AZULFIDINE-EN [Concomitant]
     Dosage: DAILY DOSE: 250 MG
     Route: 048
     Dates: start: 20130418
  4. RIMATIL [Concomitant]
     Dosage: DAILY DOSE: 200 MG
     Route: 048
     Dates: start: 20130207
  5. BREDININ [Concomitant]
     Dosage: DAILY DOSE: 150 MG
     Dates: start: 20121101

REACTIONS (1)
  - Dermatitis allergic [Not Recovered/Not Resolved]
